FAERS Safety Report 17525490 (Version 4)
Quarter: 2020Q2

REPORT INFORMATION
  Report Type: Report from Study
  Country: US (occurrence: US)
  Receive Date: 20200310
  Receipt Date: 20200505
  Transmission Date: 20200713
  Serious: Yes (Hospitalization, Other)
  Sender: FDA-Public Use
  Company Number: US-AGIOS-2002US01717

PATIENT

DRUGS (6)
  1. TIBSOVO [Suspect]
     Active Substance: IVOSIDENIB
     Dosage: 250 MILLIGRAM, QD EVERY OTHER DAY AT NIGHT
     Route: 048
     Dates: start: 20200221
  2. TIBSOVO [Suspect]
     Active Substance: IVOSIDENIB
     Indication: ACUTE MYELOID LEUKAEMIA
     Dosage: 250 MILLIGRAM, QD EVERY OTHER DAY AT NIGHT
     Route: 048
     Dates: start: 20200210, end: 20200220
  3. ANTIFUNGAL                         /00101201/ [Concomitant]
     Indication: PRODUCT USED FOR UNKNOWN INDICATION
  4. TIBSOVO [Suspect]
     Active Substance: IVOSIDENIB
     Dosage: 250 MILLIGRAM, QD EVERY OTHER DAY AT NIGHT
     Route: 048
     Dates: start: 20200214
  5. DECITABINE. [Concomitant]
     Active Substance: DECITABINE
     Indication: ACUTE MYELOID LEUKAEMIA
  6. TIBSOVO [Suspect]
     Active Substance: IVOSIDENIB
     Dosage: 250 MILLIGRAM, QD (2 DAYS ON, 1 DAY OFF)
     Route: 048

REACTIONS (13)
  - Blood potassium decreased [Unknown]
  - Electrocardiogram QT prolonged [Not Recovered/Not Resolved]
  - Tremor [Unknown]
  - Arthropod bite [Unknown]
  - Muscular weakness [Unknown]
  - Blood lactic acid increased [Unknown]
  - Off label use [Unknown]
  - Electrolyte imbalance [Unknown]
  - Weight decreased [Unknown]
  - Nausea [Not Recovered/Not Resolved]
  - Abdominal discomfort [Not Recovered/Not Resolved]
  - Asthenia [Unknown]
  - Muscle fatigue [Unknown]

NARRATIVE: CASE EVENT DATE: 20200210
